FAERS Safety Report 23426931 (Version 1)
Quarter: 2024Q1

REPORT INFORMATION
  Report Type: Spontaneous
  Country: US (occurrence: None)
  Receive Date: 20240119
  Receipt Date: 20240119
  Transmission Date: 20240410
  Serious: Yes (Life-Threatening)
  Sender: FDA-Public Use
  Company Number: None

PATIENT
  Age: 56 Year
  Sex: Female
  Weight: 71.5 kg

DRUGS (8)
  1. PROMACTA [Suspect]
     Active Substance: ELTROMBOPAG OLAMINE
     Indication: Immune thrombocytopenia
     Dosage: 150MG DAILY ORAL
     Route: 048
     Dates: start: 20200306, end: 20240104
  2. ELIQUIS [Concomitant]
  3. LEVOTHYROXINE [Concomitant]
  4. VITAMIN D2 [Concomitant]
     Active Substance: ERGOCALCIFEROL
  5. LATANOPROST [Concomitant]
  6. VOLTAREN GEL [Concomitant]
  7. CALCIUM CARBONATE W/VITAMIN D [Concomitant]
  8. ALBUTEROL INHALER [Concomitant]

REACTIONS (3)
  - Thrombosis [None]
  - Hypoaesthesia [None]
  - Peripheral swelling [None]

NARRATIVE: CASE EVENT DATE: 20240104
